FAERS Safety Report 17105858 (Version 1)
Quarter: 2019Q4

REPORT INFORMATION
  Report Type: Spontaneous
  Country: CN (occurrence: CN)
  Receive Date: 20191203
  Receipt Date: 20191203
  Transmission Date: 20200122
  Serious: Yes (Other)
  Sender: FDA-Public Use
  Company Number: CN-BAXTER-2019BAX024153

PATIENT
  Age: 56 Year
  Sex: Female

DRUGS (4)
  1. 20% MANNITOL INJECTION [Suspect]
     Active Substance: MANNITOL
     Indication: BRAIN HERNIATION
  2. 20% MANNITOL INJECTION [Suspect]
     Active Substance: MANNITOL
     Indication: CEREBRAL HAEMORRHAGE
     Route: 041
     Dates: start: 20190930, end: 20191007
  3. SODIUM CHLORIDE. [Suspect]
     Active Substance: SODIUM CHLORIDE
     Indication: MEDICATION DILUTION
     Route: 041
     Dates: start: 20191004, end: 20191007
  4. CEFMENOXIME HYDROCHLORIDE [Suspect]
     Active Substance: CEFMENOXIME HYDROCHLORIDE
     Indication: PNEUMONIA
     Route: 041
     Dates: start: 20191002, end: 20191007

REACTIONS (1)
  - Sinus bradycardia [Recovering/Resolving]

NARRATIVE: CASE EVENT DATE: 20191006
